FAERS Safety Report 15942642 (Version 1)
Quarter: 2019Q1

REPORT INFORMATION
  Report Type: Spontaneous
  Country: US (occurrence: US)
  Receive Date: 20190209
  Receipt Date: 20190209
  Transmission Date: 20190417
  Serious: No
  Sender: FDA-Public Use
  Company Number: US-JNJFOC-20190129639

PATIENT
  Sex: Female
  Weight: 68.04 kg

DRUGS (3)
  1. MENS ROGAINE EXTRA STRENGTH [Suspect]
     Active Substance: MINOXIDIL
     Route: 061
  2. MENS ROGAINE EXTRA STRENGTH [Suspect]
     Active Substance: MINOXIDIL
     Indication: ALOPECIA AREATA
     Dosage: 1/2 CAPFULL
     Route: 061
  3. CLARITIN [Concomitant]
     Active Substance: LORATADINE
     Indication: SEASONAL ALLERGY
     Dosage: ON IT FO RCOUPLE OF WEEKS
     Route: 065

REACTIONS (6)
  - Product use issue [Unknown]
  - Product formulation issue [Unknown]
  - Product container issue [Unknown]
  - Off label use [Unknown]
  - Poor quality product administered [Unknown]
  - Product use in unapproved indication [Unknown]
